FAERS Safety Report 15440855 (Version 1)
Quarter: 2018Q3

REPORT INFORMATION
  Report Type: Spontaneous
  Country: ZA (occurrence: ZA)
  Receive Date: 20180928
  Receipt Date: 20180928
  Transmission Date: 20181010
  Serious: Yes (Hospitalization, Other)
  Sender: FDA-Public Use
  Company Number: ZA-PFIZER INC-2018388036

PATIENT
  Age: 68 Year
  Sex: Female

DRUGS (5)
  1. DISPRIN CARDIOCARE [Suspect]
     Active Substance: ASPIRIN
     Dosage: 100 MG, UNK
  2. OLEXAR [Suspect]
     Active Substance: OLANZAPINE
     Dosage: 2.5 MG, UNK
  3. ASPAVOR [Suspect]
     Active Substance: ATORVASTATIN
     Dosage: 10 MG, UNK
  4. ZOMEVEK [Suspect]
     Active Substance: VALSARTAN
     Dosage: 80 MG, UNK
  5. BILOCOR [Suspect]
     Active Substance: BISOPROLOL FUMARATE
     Dosage: 5 MG, UNK

REACTIONS (2)
  - Seizure [Unknown]
  - Dementia Alzheimer^s type [Unknown]
